FAERS Safety Report 7768768-4 (Version None)
Quarter: 2011Q3

REPORT INFORMATION
  Report Type: 
  Country: None (occurrence: None)
  Receive Date: 20110922
  Receipt Date: 20101006
  Transmission Date: 20111222
  Serious: No
  Sender: FDA-Public Use
  Company Number: US-ASTRAZENECA-2010SE47111

PATIENT
  Sex: Female
  Weight: 58.1 kg

DRUGS (2)
  1. SEROQUEL [Suspect]
     Indication: GENERALISED ANXIETY DISORDER
     Route: 048
     Dates: start: 20100915
  2. CLARITIN [Concomitant]
     Indication: SEASONAL ALLERGY

REACTIONS (3)
  - ARTHRALGIA [None]
  - ASTHENIA [None]
  - EAR DISCOMFORT [None]
